FAERS Safety Report 12139527 (Version 2)
Quarter: 2016Q1

REPORT INFORMATION
  Report Type: Spontaneous
  Country: US (occurrence: US)
  Receive Date: 20160303
  Receipt Date: 20160309
  Transmission Date: 20160526
  Serious: Yes (Death, Life-Threatening, Hospitalization, Other)
  Sender: FDA-Public Use
  Company Number: US-009507513-1603USA000268

PATIENT
  Age: 83 Year
  Sex: Male

DRUGS (1)
  1. ENTEREG [Suspect]
     Active Substance: ALVIMOPAN
     Indication: PROPHYLAXIS
     Dosage: 12 MG, UNK, 4 PRE- OP DOSES
     Route: 048
     Dates: start: 20160203, end: 20160206

REACTIONS (4)
  - Cerebral haemorrhage [Unknown]
  - Death [Fatal]
  - Drug administration error [Unknown]
  - Cardiovascular disorder [Unknown]

NARRATIVE: CASE EVENT DATE: 201602
